FAERS Safety Report 8729652 (Version 3)
Quarter: 2013Q1

REPORT INFORMATION
  Report Type: Spontaneous
  Country: FR (occurrence: FR)
  Receive Date: 20120817
  Receipt Date: 20130207
  Transmission Date: 20140127
  Serious: Yes (Death)
  Sender: FDA-Public Use
  Company Number: FR-ROCHE-1097976

PATIENT
  Age: 66 Year
  Sex: Male

DRUGS (39)
  1. BACTRIM FORTE [Suspect]
     Indication: PROPHYLAXIS
     Dosage: 110 TO 80 MG
     Route: 048
     Dates: start: 20120118, end: 20120120
  2. BACTRIM FORTE [Suspect]
     Indication: CYTOMEGALOVIRUS INFECTION
     Dosage: 110 TO 80 MG
     Route: 048
     Dates: start: 20120221, end: 20120405
  3. CELLCEPT [Suspect]
     Indication: GRAFT HAEMORRHAGE
     Route: 065
     Dates: start: 20120123, end: 20120306
  4. RITUXIMAB [Suspect]
     Indication: PRODUCT USED FOR UNKNOWN INDICATION
     Route: 065
     Dates: start: 20120405
  5. RITUXIMAB [Suspect]
     Route: 065
     Dates: start: 20120413
  6. RITUXIMAB [Suspect]
     Route: 065
     Dates: start: 20120420
  7. ROVALCYTE [Suspect]
     Indication: PROPHYLAXIS
     Route: 048
     Dates: start: 20120309, end: 20120317
  8. ROVALCYTE [Suspect]
     Indication: CYTOMEGALOVIRUS INFECTION
  9. SANDIMMUN [Suspect]
     Indication: PROPHYLAXIS
     Route: 042
     Dates: start: 20120123, end: 20120404
  10. SANDIMMUN [Suspect]
     Indication: GRAFT HAEMORRHAGE
  11. VFEND [Suspect]
     Indication: PROPHYLAXIS
     Route: 042
  12. VFEND [Suspect]
     Indication: ASPERGILLUS INFECTION
     Route: 065
     Dates: end: 20120511
  13. HEPARINE CHOAY [Suspect]
     Indication: PROPHYLAXIS
     Route: 042
     Dates: start: 20120122, end: 20120322
  14. PLITICAN [Suspect]
     Indication: PROPHYLAXIS
     Route: 042
     Dates: start: 20120119
  15. PLITICAN [Suspect]
     Route: 042
     Dates: start: 20120314, end: 20120319
  16. SOLU-MEDROL [Suspect]
     Indication: IMMUNOSUPPRESSION
     Route: 042
  17. LEVOTHYROX [Suspect]
     Indication: HYPOTHYROIDISM
     Route: 042
     Dates: start: 2009, end: 20120511
  18. ORACILLINE [Suspect]
     Indication: PROPHYLAXIS
     Route: 048
     Dates: start: 20120221, end: 20120322
  19. ORACILLINE [Suspect]
     Indication: CYTOMEGALOVIRUS INFECTION
  20. TIORFAN [Suspect]
     Indication: PROPHYLAXIS
     Route: 048
     Dates: start: 20120222, end: 20120425
  21. TIORFAN [Suspect]
     Indication: DIARRHOEA
     Route: 048
     Dates: end: 20120425
  22. SPECIAFOLDINE [Suspect]
     Indication: VITAMIN B12 DEFICIENCY
     Route: 065
     Dates: start: 20120223, end: 20120405
  23. EFFEXOR [Suspect]
     Indication: DEPRESSION
     Route: 048
     Dates: start: 20120313, end: 20120322
  24. TRANXENE [Suspect]
     Indication: ANXIETY
     Route: 048
     Dates: start: 20120129, end: 20120316
  25. TRANXENE [Suspect]
     Route: 048
     Dates: start: 20120314, end: 20120316
  26. LOXEN [Suspect]
     Indication: HYPERTENSION
     Route: 048
     Dates: start: 20120206, end: 20120415
  27. URSODEOXYCHOLIC ACID [Suspect]
     Indication: CHOLESTASIS
     Route: 048
  28. ZOLPIDEM [Suspect]
     Indication: INSOMNIA
     Route: 048
     Dates: start: 20120214, end: 20120318
  29. INEXIUM [Suspect]
     Indication: ULCER
     Route: 065
     Dates: start: 20120119, end: 20120511
  30. FUROSEMIDE [Suspect]
     Indication: OEDEMA PERIPHERAL
     Route: 065
     Dates: start: 20120224
  31. FOSCAVIR [Concomitant]
     Route: 065
     Dates: start: 20120225, end: 20120309
  32. VIDAZA [Concomitant]
  33. IDARUBICIN [Concomitant]
  34. ARACYTINE [Concomitant]
  35. VANCOMYCIN [Concomitant]
  36. SANDOGLOBULINE [Concomitant]
     Route: 065
     Dates: start: 20120119, end: 20120126
  37. SOLIRIS [Concomitant]
     Route: 065
     Dates: start: 20120425
  38. CYMEVENE [Concomitant]
     Route: 065
     Dates: start: 20120428
  39. CYMEVENE [Concomitant]
     Route: 065
     Dates: start: 20120506

REACTIONS (1)
  - Thrombotic microangiopathy [Fatal]
